FAERS Safety Report 8919218 (Version 1)
Quarter: 2012Q4

REPORT INFORMATION
  Report Type: 
  Country: SE (occurrence: SE)
  Receive Date: 20121121
  Receipt Date: 20121121
  Transmission Date: 20130627
  Serious: Yes (Hospitalization, Other)
  Sender: FDA-Public Use
  Company Number: SE-PFIZER INC-2005140479

PATIENT
  Age: 64 Year
  Sex: Female

DRUGS (9)
  1. IPREN [Suspect]
     Indication: ARTHRITIC PAINS
     Dosage: 400 MG 3 TIMES DAILY
     Route: 048
     Dates: start: 200502, end: 20050603
  2. IPREN [Suspect]
     Indication: ARTHRITIS
  3. VOLTAREN [Suspect]
     Indication: ARTHRITIC PAINS
     Dosage: 50 MG 3 TIMES DAILY
     Route: 048
     Dates: start: 200502, end: 20050603
  4. VOLTAREN [Suspect]
     Indication: ARTHRITIS
  5. PANODIL [Concomitant]
     Route: 048
  6. COAPROVEL [Concomitant]
     Route: 048
  7. EMCONCOR [Concomitant]
     Route: 048
  8. DEXOFEN [Concomitant]
     Route: 048
  9. LOMIR [Concomitant]
     Route: 048

REACTIONS (1)
  - Generalised oedema [Recovered/Resolved]
